FAERS Safety Report 5011232-6 (Version None)
Quarter: 2006Q2

REPORT INFORMATION
  Report Type: 
  Country: None (occurrence: None)
  Receive Date: 20060404
  Receipt Date: 20060117
  Transmission Date: 20061013
  Serious: No
  Sender: FDA-Public Use
  Company Number: US200601002830

PATIENT
  Sex: Female

DRUGS (7)
  1. CYMBALTA [Suspect]
     Indication: PAIN IN EXTREMITY
     Dates: start: 20051201
  2. QUININE SULFATE (QUININE SULFATE UNKNOWN FORMULATION) [Concomitant]
  3. ACTOS (PIOGLITAZONE UNKNOWN FORMULATION) [Concomitant]
  4. HYDROCHLOROTHIAZIDE [Concomitant]
  5. GLYBURIDE [Concomitant]
  6. CALTRATE (CALCIUM CARBONATE) [Concomitant]
  7. TRAMADOL HCL [Concomitant]

REACTIONS (4)
  - ANOREXIA [None]
  - IMPAIRED WORK ABILITY [None]
  - MALAISE [None]
  - STOMACH DISCOMFORT [None]
